FAERS Safety Report 5065979-6 (Version None)
Quarter: 2006Q3

REPORT INFORMATION
  Report Type: 
  Country: None (occurrence: None)
  Receive Date: 20060728
  Receipt Date: 20060728
  Transmission Date: 20061208
  Serious: Yes (Death)
  Sender: FDA-Public Use
  Company Number: None

PATIENT
  Sex: Female
  Weight: 49 kg

DRUGS (5)
  1. FLUDARABINE [Suspect]
     Indication: ACUTE MYELOID LEUKAEMIA
     Dosage: 48  DAILY   IV
     Route: 042
     Dates: start: 20060328, end: 20060401
  2. MELPHALAN [Suspect]
     Indication: BONE MARROW CONDITIONING REGIMEN
     Dosage: 224   TIMES ONE     IV
     Route: 042
     Dates: start: 20060402, end: 20060402
  3. MELPHALAN [Suspect]
     Indication: STEM CELL TRANSPLANT
     Dosage: 224   TIMES ONE     IV
     Route: 042
     Dates: start: 20060402, end: 20060402
  4. AMBISOME [Concomitant]
  5. ACYCLOVIR [Concomitant]

REACTIONS (10)
  - BRAIN MASS [None]
  - BRONCHOPULMONARY ASPERGILLOSIS [None]
  - CEREBELLAR INFARCTION [None]
  - GENERAL PHYSICAL HEALTH DETERIORATION [None]
  - INFLAMMATION [None]
  - ISCHAEMIC CEREBRAL INFARCTION [None]
  - METASTASES TO ABDOMINAL CAVITY [None]
  - METASTASES TO LIVER [None]
  - MUSCULAR WEAKNESS [None]
  - NECROSIS [None]
